FAERS Safety Report 23039769 (Version 1)
Quarter: 2023Q4

REPORT INFORMATION
  Report Type: Spontaneous
  Country: US (occurrence: None)
  Receive Date: 20231006
  Receipt Date: 20231006
  Transmission Date: 20240109
  Serious: Yes (Life-Threatening)
  Sender: FDA-Public Use
  Company Number: None

PATIENT
  Age: 84 Year
  Sex: Female
  Weight: 45 kg

DRUGS (11)
  1. VANCOMYCIN [Suspect]
     Active Substance: VANCOMYCIN
     Indication: Sepsis
     Dosage: OTHER FREQUENCY : ONCE;?
     Route: 042
     Dates: start: 20230915, end: 20230915
  2. VANCOMYCIN [Suspect]
     Active Substance: VANCOMYCIN
     Indication: Urinary tract infection
  3. Acetaminophen 650 mg PO Q4H [Concomitant]
     Dates: start: 20230915
  4. Cefepime 2gm IV once [Concomitant]
     Dates: start: 20230915
  5. LACTATED RINGERS SOLUTION [Concomitant]
     Active Substance: CALCIUM CHLORIDE\POTASSIUM CHLORIDE\SODIUM CHLORIDE\SODIUM LACTATE
     Dates: start: 20230915
  6. Norepinephrine 16 mg (0.1 mcg/kg/min) [Concomitant]
     Dates: start: 20230915
  7. Atorvastatin 10 mg PO [Concomitant]
     Dates: start: 20230915
  8. Enoxaparin 40 mg subQ [Concomitant]
     Dates: start: 20230915
  9. Insulin glargine 12 units [Concomitant]
     Dates: start: 20230915
  10. Zosyn 4.5 gm IV [Concomitant]
     Dates: start: 20230915
  11. Senna 17.2 mg PO [Concomitant]
     Dates: start: 20230915

REACTIONS (3)
  - Anaphylactic shock [None]
  - Drug hypersensitivity [None]
  - Myocardial ischaemia [None]

NARRATIVE: CASE EVENT DATE: 20230915
